FAERS Safety Report 7672159-4 (Version None)
Quarter: 2011Q3

REPORT INFORMATION
  Report Type: 
  Country: None (occurrence: None)
  Receive Date: 20110809
  Receipt Date: 20110803
  Transmission Date: 20111222
  Serious: Yes (Death)
  Sender: FDA-Public Use
  Company Number: PHEH2011US00754

PATIENT
  Age: 42 Year
  Sex: Male
  Weight: 72.562 kg

DRUGS (2)
  1. TOBI [Suspect]
     Dosage: 300 MG, BID (28 DAYS ON AND 28 DAYS OFF)
     Dates: start: 20110617, end: 20110803
  2. ADCIRCA [Concomitant]

REACTIONS (1)
  - DEATH [None]
